FAERS Safety Report 17680551 (Version 1)
Quarter: 2020Q2

REPORT INFORMATION
  Report Type: Spontaneous
  Country: US (occurrence: US)
  Receive Date: 20200417
  Receipt Date: 20200417
  Transmission Date: 20200714
  Serious: Yes (Hospitalization, Other)
  Sender: FDA-Public Use
  Company Number: US-NAPPMUNDI-USA-2020-0151768

PATIENT
  Sex: Male

DRUGS (1)
  1. OXYCONTIN [Suspect]
     Active Substance: OXYCODONE HYDROCHLORIDE
     Indication: PAIN
     Dosage: 80 MG, UNK
     Route: 048
     Dates: start: 199909, end: 201606

REACTIONS (9)
  - Suicide attempt [Recovered/Resolved]
  - Anger [Unknown]
  - Abdominal pain upper [Unknown]
  - Intentional self-injury [Recovered/Resolved]
  - Depression [Unknown]
  - Insomnia [Unknown]
  - Irritability [Unknown]
  - Urinary incontinence [Unknown]
  - Antisocial behaviour [Unknown]
